FAERS Safety Report 5288711-X (Version None)
Quarter: 2007Q2

REPORT INFORMATION
  Report Type: 
  Country: None (occurrence: None)
  Receive Date: 20070405
  Receipt Date: 20070330
  Transmission Date: 20071010
  Serious: Yes (Other)
  Sender: FDA-Public Use
  Company Number: CA-ROCHE-490860

PATIENT
  Age: 23 Year
  Sex: Female

DRUGS (3)
  1. ACCUTANE [Suspect]
     Indication: ACNE
     Dosage: DOSE INCREASED.
     Route: 048
     Dates: start: 20070204, end: 20070328
  2. ACCUTANE [Suspect]
     Dosage: 40 MG EVERY TWO DAYS.
     Route: 048
     Dates: start: 20070125, end: 20070203
  3. TRI-CYCLEN [Concomitant]
     Dosage: GENERIC REPORTED AS NORGESTIMATE ETHINYL ESTRADIOL.
     Route: 048

REACTIONS (4)
  - FEELING HOT [None]
  - LOSS OF CONSCIOUSNESS [None]
  - NAUSEA [None]
  - TREMOR [None]
